FAERS Safety Report 7597265-4 (Version None)
Quarter: 2011Q3

REPORT INFORMATION
  Report Type: 
  Country: None (occurrence: None)
  Receive Date: 20110708
  Receipt Date: 20110124
  Transmission Date: 20111222
  Serious: No
  Sender: FDA-Public Use
  Company Number: US-GLAXOSMITHKLINE-A0908607A

PATIENT
  Age: 86 Year
  Sex: Female

DRUGS (3)
  1. FLOVENT [Suspect]
     Indication: DYSPNOEA
     Dosage: 1PUFF TWICE PER DAY
     Route: 055
     Dates: start: 20100701
  2. ATENOLOL [Concomitant]
  3. UNSPECIFIED THYROID MEDICATION [Concomitant]

REACTIONS (1)
  - DYSPHONIA [None]
